FAERS Safety Report 21599336 (Version 4)
Quarter: 2022Q4

REPORT INFORMATION
  Report Type: Spontaneous
  Country: NL (occurrence: NL)
  Receive Date: 20221115
  Receipt Date: 20221125
  Transmission Date: 20230112
  Serious: Yes (Death, Hospitalization, Other)
  Sender: FDA-Public Use
  Company Number: NL-GILEAD-2022-0580975

PATIENT
  Age: 54 Year
  Sex: Male

DRUGS (2)
  1. YESCARTA [Suspect]
     Active Substance: AXICABTAGENE CILOLEUCEL
     Indication: Diffuse large B-cell lymphoma
     Dosage: N/A
     Route: 065
     Dates: start: 20220516, end: 20220516
  2. NADROPARIN [Concomitant]
     Active Substance: NADROPARIN
     Dosage: 1 ML, QD
     Dates: start: 20220625

REACTIONS (4)
  - Immune effector cell-associated neurotoxicity syndrome [Recovered/Resolved]
  - Brain oedema [Recovered/Resolved with Sequelae]
  - Brain neoplasm [Fatal]
  - Computerised tomogram abnormal [Unknown]

NARRATIVE: CASE EVENT DATE: 20220521
